FAERS Safety Report 8312067-9 (Version None)
Quarter: 2012Q2

REPORT INFORMATION
  Report Type: 
  Country: None (occurrence: None)
  Receive Date: 20120425
  Receipt Date: 20110808
  Transmission Date: 20120825
  Serious: Yes (Other)
  Sender: FDA-Public Use
  Company Number: US-TEVA-US009584

PATIENT
  Sex: Female
  Weight: 47 kg

DRUGS (2)
  1. PROVIGIL [Suspect]
     Indication: OBSESSIVE-COMPULSIVE DISORDER
  2. PROVIGIL [Suspect]
     Indication: ATTENTION DEFICIT/HYPERACTIVITY DISORDER
     Dosage: 50 MILLIGRAM;
     Route: 048
     Dates: start: 20010827, end: 20010903

REACTIONS (2)
  - ABORTION SPONTANEOUS [None]
  - MATERNAL EXPOSURE DURING PREGNANCY [None]
